FAERS Safety Report 16090893 (Version 1)
Quarter: 2019Q1

REPORT INFORMATION
  Report Type: Report from Study
  Country: ES (occurrence: ES)
  Receive Date: 20190319
  Receipt Date: 20190319
  Transmission Date: 20190418
  Serious: Yes (Death)
  Sender: FDA-Public Use
  Company Number: ES-PFIZER INC-2019120256

PATIENT
  Age: 70 Year
  Sex: Male
  Weight: 100 kg

DRUGS (11)
  1. ACETYLSALICYLIC ACID [Concomitant]
     Active Substance: ASPIRIN
     Dosage: 100 MG, UNK
     Route: 048
  2. RAMIPRIL. [Concomitant]
     Active Substance: RAMIPRIL
     Dosage: IF SYSTOLIC BLOOD PRESSURE IS 110 MMHG, HALF TABLET/DAY
     Route: 048
  3. CARBOPLATIN. [Suspect]
     Active Substance: CARBOPLATIN
     Indication: TRANSITIONAL CELL CARCINOMA
     Dosage: 359 MG, EVERY 3 WEEKS
     Route: 042
     Dates: start: 20181211
  4. TICAGRELOR. [Concomitant]
     Active Substance: TICAGRELOR
     Dosage: 90 MG, 2X/DAY
     Route: 048
  5. ROSUVASTATINE [ROSUVASTATIN CALCIUM] [Concomitant]
     Dosage: 20 MG, UNK
     Route: 048
  6. OMEPRAZOLE. [Concomitant]
     Active Substance: OMEPRAZOLE
     Dosage: 20 MG, UNK
     Route: 048
  7. GEMCITABINE HYDROCHLORIDE. [Suspect]
     Active Substance: GEMCITABINE HYDROCHLORIDE
     Dosage: 2070 MG, EVERY 3 WEEKS
     Route: 042
     Dates: end: 20190205
  8. CARVEDILOL. [Concomitant]
     Active Substance: CARVEDILOL
     Dosage: HALF TABLET EVERY 12 HOURS
     Route: 048
  9. AVELUMAB [Suspect]
     Active Substance: AVELUMAB
     Indication: TRANSITIONAL CELL CARCINOMA
     Dosage: 988.5 MG, EVERY 3 WEEKS
     Route: 042
     Dates: start: 20181107, end: 20190122
  10. CARBOPLATIN. [Suspect]
     Active Substance: CARBOPLATIN
     Dosage: 406.5 MG, EVERY 3 WEEKS
     Route: 042
     Dates: end: 20190129
  11. GEMCITABINE HYDROCHLORIDE. [Suspect]
     Active Substance: GEMCITABINE HYDROCHLORIDE
     Indication: TRANSITIONAL CELL CARCINOMA
     Dosage: 2110 MG, EVERY 3 WEEKS
     Route: 042
     Dates: start: 20181211

REACTIONS (1)
  - Myocardial infarction [Fatal]

NARRATIVE: CASE EVENT DATE: 20190309
